FAERS Safety Report 10458019 (Version 2)
Quarter: 2014Q3

REPORT INFORMATION
  Report Type: Spontaneous
  Country: US (occurrence: US)
  Receive Date: 20140916
  Receipt Date: 20140924
  Transmission Date: 20150326
  Serious: No
  Sender: FDA-Public Use
  Company Number: US-009507513-1409USA005763

PATIENT
  Age: 23 Year
  Sex: Female

DRUGS (2)
  1. IMPLANON [Suspect]
     Active Substance: ETONOGESTREL
     Dosage: UNK
  2. IMPLANON [Suspect]
     Active Substance: ETONOGESTREL
     Dosage: 68
     Route: 059
     Dates: start: 20110801

REACTIONS (4)
  - Medical device complication [Recovered/Resolved]
  - Device deployment issue [Not Recovered/Not Resolved]
  - Incorrect drug administration duration [Unknown]
  - Complication of device removal [Unknown]

NARRATIVE: CASE EVENT DATE: 20110801
